FAERS Safety Report 6041961-7 (Version None)
Quarter: 2009Q1

REPORT INFORMATION
  Report Type: 
  Country: None (occurrence: None)
  Receive Date: 20090116
  Receipt Date: 20090115
  Transmission Date: 20090719
  Serious: Yes (Other)
  Sender: FDA-Public Use
  Company Number: CA-RB-008247-09

PATIENT
  Sex: Male

DRUGS (1)
  1. SUBOXONE [Suspect]
     Indication: DRUG DEPENDENCE
     Dosage: DOSING INFORMATION UNKNOWN.
     Route: 060
     Dates: start: 20080701

REACTIONS (9)
  - BLOOD TESTOSTERONE DECREASED [None]
  - FATIGUE [None]
  - HYPERGLYCAEMIA [None]
  - HYPERHIDROSIS [None]
  - HYPOAESTHESIA [None]
  - HYPOGLYCAEMIA [None]
  - PAIN IN EXTREMITY [None]
  - SOMNOLENCE [None]
  - URINARY TRACT INFECTION [None]
